FAERS Safety Report 22138390 (Version 1)
Quarter: 2023Q1

REPORT INFORMATION
  Report Type: Spontaneous
  Country: NL (occurrence: NL)
  Receive Date: 20230326
  Receipt Date: 20230326
  Transmission Date: 20230417
  Serious: Yes (Life-Threatening, Hospitalization)
  Sender: FDA-Public Use
  Company Number: None

PATIENT
  Sex: Female

DRUGS (1)
  1. PREGABALIN [Suspect]
     Active Substance: PREGABALIN
     Indication: Neuralgia
     Dosage: 150 GRAM DAILY;  BRAND NAME NOT SPECIFIED
     Route: 065
     Dates: start: 20221128, end: 20221202

REACTIONS (2)
  - Ischaemic cerebral infarction [Recovering/Resolving]
  - Hemiparesis [Recovering/Resolving]
